FAERS Safety Report 8417660-0 (Version None)
Quarter: 2012Q2

REPORT INFORMATION
  Report Type: 
  Country: None (occurrence: None)
  Receive Date: 20120606
  Receipt Date: 20120529
  Transmission Date: 20120825
  Serious: Yes (Hospitalization)
  Sender: FDA-Public Use
  Company Number: JP-VERTEX PHARMACEUTICALS INC.-AE-2012-007462

PATIENT
  Age: 66 Year
  Sex: Male

DRUGS (12)
  1. ALLOPURINOL [Concomitant]
     Route: 048
  2. REBETOL [Concomitant]
     Route: 048
     Dates: start: 20120517
  3. TELAVIC (TELAPREVIR) [Suspect]
     Route: 048
     Dates: start: 20120517
  4. PEG-INTRON [Concomitant]
     Indication: HEPATITIS C
     Route: 058
     Dates: start: 20120322
  5. URSO 250 [Concomitant]
     Route: 048
     Dates: end: 20120510
  6. TELAVIC (TELAPREVIR) [Suspect]
     Indication: HEPATITIS C
     Route: 048
     Dates: start: 20120322, end: 20120510
  7. REBETOL [Concomitant]
     Route: 048
     Dates: start: 20120419, end: 20120425
  8. NORVASC [Concomitant]
     Route: 048
  9. REBETOL [Concomitant]
     Indication: HEPATITIS C
     Route: 048
     Dates: start: 20120322, end: 20120418
  10. REBETOL [Concomitant]
     Route: 048
     Dates: start: 20120426, end: 20120510
  11. LANSOPRAZOLE [Concomitant]
     Route: 048
  12. TPN ELECTROLYTES IN PLASTIC CONTAINER [Concomitant]

REACTIONS (2)
  - DECREASED APPETITE [None]
  - GASTRITIS [None]
